FAERS Safety Report 9916557 (Version 2)
Quarter: 2014Q1

REPORT INFORMATION
  Report Type: Spontaneous
  Country: US (occurrence: US)
  Receive Date: 20140221
  Receipt Date: 20140311
  Transmission Date: 20141002
  Serious: Yes (Hospitalization, Other)
  Sender: FDA-Public Use
  Company Number: US-009507513-1402USA005173

PATIENT
  Sex: Female

DRUGS (6)
  1. FOSAMAX [Suspect]
     Indication: OSTEOPENIA
     Dosage: 70 MG, UNK
     Route: 048
     Dates: start: 20061001, end: 20070430
  2. FOSAMAX [Suspect]
     Indication: OSTEOPOROSIS
  3. TAMOXIFEN CITRATE [Concomitant]
     Indication: BREAST CANCER
     Dosage: UNK
     Dates: start: 2001, end: 2010
  4. FEMARA [Concomitant]
     Indication: BREAST CANCER
     Dosage: UNK
     Dates: start: 2007, end: 2011
  5. CRESTOR [Concomitant]
     Indication: BLOOD CHOLESTEROL
     Dosage: UNK
     Dates: start: 2005
  6. DIOVAN [Concomitant]
     Indication: BLOOD CHOLESTEROL
     Dosage: UNK
     Dates: start: 1998

REACTIONS (16)
  - Femur fracture [Unknown]
  - Open reduction of fracture [Unknown]
  - Humerus fracture [Unknown]
  - Pulmonary mass [Unknown]
  - Low turnover osteopathy [Unknown]
  - Foot fracture [Unknown]
  - Vitamin D deficiency [Unknown]
  - Cystopexy [Unknown]
  - Bunion operation [Unknown]
  - Histoplasmosis [Unknown]
  - Fracture nonunion [Unknown]
  - Cough [Unknown]
  - Faecal incontinence [Unknown]
  - Urinary incontinence [Unknown]
  - Gastrooesophageal reflux disease [Unknown]
  - Rash [Recovered/Resolved]
